FAERS Safety Report 8214915-X (Version None)
Quarter: 2012Q1

REPORT INFORMATION
  Report Type: 
  Country: None (occurrence: None)
  Receive Date: 20120316
  Receipt Date: 20120307
  Transmission Date: 20120608
  Serious: Yes (Other)
  Sender: FDA-Public Use
  Company Number: US-SANOFI-AVENTIS-2012SA017317

PATIENT
  Age: 68 Year
  Sex: Male

DRUGS (2)
  1. FLUDARABINE PHOSPHATE [Suspect]
     Indication: LYMPHOMA
     Dosage: RECIEVED 1 CYCLE
     Route: 065
  2. PEGFILGRASTIM [Suspect]
     Dosage: GIVEN ON SAME DAY AS METHOTREXATE
     Route: 065

REACTIONS (1)
  - MYELODYSPLASTIC SYNDROME [None]
